FAERS Safety Report 14555019 (Version 3)
Quarter: 2018Q2

REPORT INFORMATION
  Report Type: Spontaneous
  Country: US (occurrence: US)
  Receive Date: 20180220
  Receipt Date: 20180418
  Transmission Date: 20180711
  Serious: No
  Sender: FDA-Public Use
  Company Number: US-GLAXOSMITHKLINE-US2018024829

PATIENT

DRUGS (1)
  1. NICODERM CQ [Suspect]
     Active Substance: NICOTINE
     Indication: SMOKING CESSATION THERAPY
     Dosage: UNK

REACTIONS (7)
  - Wrong technique in product usage process [Unknown]
  - Abnormal dreams [Unknown]
  - Overdose [Unknown]
  - Product quality issue [Unknown]
  - Application site pruritus [Unknown]
  - Nausea [Unknown]
  - Product selection error [Unknown]
